FAERS Safety Report 4755881-9 (Version None)
Quarter: 2005Q3

REPORT INFORMATION
  Report Type: 
  Country: None (occurrence: None)
  Receive Date: 20050830
  Receipt Date: 20050715
  Transmission Date: 20060218
  Serious: No
  Sender: FDA-Public Use
  Company Number: US-BRISTOL-MYERS SQUIBB COMPANY-13039821

PATIENT
  Age: 58 Year
  Sex: Male
  Weight: 71 kg

DRUGS (4)
  1. ERBITUX [Suspect]
     Indication: COLORECTAL CANCER METASTATIC
     Dosage: THERAPY START DATE 22-APR-05, REC'D 07-JUL-05 (13TH CYCLE) + 15-JUL-05.
     Route: 042
     Dates: start: 20050707, end: 20050707
  2. CAMPTOSAR [Concomitant]
     Dosage: UP TO 11TH CYCLE.
     Route: 042
  3. KYTRIL [Concomitant]
     Indication: PREMEDICATION
     Route: 042
     Dates: start: 20050707, end: 20050707
  4. BENADRYL [Concomitant]
     Indication: PREMEDICATION
     Route: 042
     Dates: start: 20050707, end: 20050707

REACTIONS (2)
  - TOOTH DISORDER [None]
  - TOOTHACHE [None]
